FAERS Safety Report 4989209-6 (Version None)
Quarter: 2006Q2

REPORT INFORMATION
  Report Type: 
  Country: None (occurrence: None)
  Receive Date: 20060425
  Receipt Date: 20060411
  Transmission Date: 20061013
  Serious: Yes (Other)
  Sender: FDA-Public Use
  Company Number: 2006050352

PATIENT
  Age: 45 Year
  Sex: Female
  Weight: 65.7716 kg

DRUGS (2)
  1. DILANTIN KAPSEAL [Suspect]
     Indication: CONVULSION
     Dosage: SEE IMAGE
     Dates: start: 19990101, end: 20060301
  2. DILANTIN KAPSEAL [Suspect]
     Indication: CONVULSION
     Dosage: SEE IMAGE
     Dates: start: 20060410, end: 20060401

REACTIONS (5)
  - ECONOMIC PROBLEM [None]
  - FATIGUE [None]
  - FEELING ABNORMAL [None]
  - HEADACHE [None]
  - TREATMENT NONCOMPLIANCE [None]
